FAERS Safety Report 22176310 (Version 1)
Quarter: 2023Q2

REPORT INFORMATION
  Report Type: Spontaneous
  Country: CH (occurrence: None)
  Receive Date: 20230405
  Receipt Date: 20230405
  Transmission Date: 20230721
  Serious: Yes (Other)
  Sender: FDA-Public Use
  Company Number: CH-ROCHE-3324059

PATIENT

DRUGS (5)
  1. RITUXIMAB [Suspect]
     Active Substance: RITUXIMAB
     Indication: B-cell lymphoma recurrent
     Route: 065
  2. CYCLOPHOSPHAMIDE [Suspect]
     Active Substance: CYCLOPHOSPHAMIDE
     Indication: B-cell lymphoma recurrent
     Route: 065
  3. EPIRUBICIN [Suspect]
     Active Substance: EPIRUBICIN
     Indication: B-cell lymphoma recurrent
     Route: 065
  4. ONCOVIN [Suspect]
     Active Substance: VINCRISTINE SULFATE
     Indication: B-cell lymphoma recurrent
     Route: 065
  5. PREDNISONE [Suspect]
     Active Substance: PREDNISONE
     Indication: B-cell lymphoma recurrent
     Route: 065

REACTIONS (1)
  - Disease progression [Unknown]
